FAERS Safety Report 16058102 (Version 2)
Quarter: 2020Q4

REPORT INFORMATION
  Report Type: Report from Study
  Country: CA (occurrence: CA)
  Receive Date: 20190311
  Receipt Date: 20201026
  Transmission Date: 20210113
  Serious: Yes (Other)
  Sender: FDA-Public Use
  Company Number: CA-JNJFOC-20190239474

PATIENT
  Age: 65 Year
  Sex: Female
  Weight: 83.7 kg

DRUGS (1)
  1. STELARA [Suspect]
     Active Substance: USTEKINUMAB
     Indication: PSORIATIC ARTHROPATHY
     Route: 058

REACTIONS (7)
  - Aphthous ulcer [Unknown]
  - Incorrect dose administered [Unknown]
  - Off label use [Unknown]
  - Nerve compression [Not Recovered/Not Resolved]
  - Sciatica [Recovered/Resolved]
  - Nausea [Recovered/Resolved]
  - Oral herpes [Unknown]

NARRATIVE: CASE EVENT DATE: 201902
